FAERS Safety Report 8365934-4 (Version None)
Quarter: 2012Q2

REPORT INFORMATION
  Report Type: 
  Country: None (occurrence: None)
  Receive Date: 20120517
  Receipt Date: 20120511
  Transmission Date: 20120825
  Serious: No
  Sender: FDA-Public Use
  Company Number: US-PFIZER INC-2012098647

PATIENT
  Sex: Female
  Weight: 77.098 kg

DRUGS (8)
  1. NICOTROL [Suspect]
     Indication: SMOKING CESSATION THERAPY
     Dosage: 4 MG, UP TO 16 DAYS
     Route: 055
     Dates: start: 20120401
  2. LEVOTHYROXINE [Concomitant]
     Dosage: 25 MG, DAILY
  3. ZOCOR [Concomitant]
     Dosage: 20 MG, DAILY
  4. XANAX [Concomitant]
     Dosage: 0.5 MG, PRN
  5. ENALAPRIL MALEATE AND HYDROCHLOROTHIAZIDE [Concomitant]
     Indication: HYPERTENSION
     Dosage: 10/12.5 DAILY
  6. CHANTIX [Concomitant]
     Indication: SMOKING CESSATION THERAPY
     Dosage: UNK
  7. PLAVIX [Concomitant]
     Dosage: 75 MG, DAILY
  8. CYMBALTA [Concomitant]
     Dosage: 40 MG, DAILY

REACTIONS (1)
  - COUGH [None]
